FAERS Safety Report 24445385 (Version 5)
Quarter: 2024Q4

REPORT INFORMATION
  Report Type: Spontaneous
  Country: JP (occurrence: JP)
  Receive Date: 20241016
  Receipt Date: 20241226
  Transmission Date: 20250115
  Serious: Yes (Hospitalization, Other)
  Sender: ALEXION PHARMACEUTICALS
  Company Number: JP-ASTRAZENECA-240106982_063010_P_1

PATIENT
  Age: 42 Year
  Weight: 84 kg

DRUGS (28)
  1. DAPAGLIFLOZIN [Suspect]
     Active Substance: DAPAGLIFLOZIN
     Indication: Type 2 diabetes mellitus
     Dosage: 5 MILLIGRAM
  2. DAPAGLIFLOZIN [Suspect]
     Active Substance: DAPAGLIFLOZIN
     Dosage: 5 MILLIGRAM
     Route: 048
  3. DAPAGLIFLOZIN [Suspect]
     Active Substance: DAPAGLIFLOZIN
     Dosage: 5 MILLIGRAM
  4. DAPAGLIFLOZIN [Suspect]
     Active Substance: DAPAGLIFLOZIN
     Dosage: 5 MILLIGRAM
     Route: 048
  5. BETAHISTINE MESILATE [Concomitant]
     Active Substance: BETAHISTINE MESILATE
  6. BETAHISTINE MESILATE [Concomitant]
     Active Substance: BETAHISTINE MESILATE
     Route: 048
  7. BETAHISTINE MESILATE [Concomitant]
     Active Substance: BETAHISTINE MESILATE
  8. BETAHISTINE MESILATE [Concomitant]
     Active Substance: BETAHISTINE MESILATE
     Route: 048
  9. ADETPHOS [Concomitant]
     Active Substance: ADENOSINE TRIPHOSPHATE
     Route: 048
  10. ADETPHOS [Concomitant]
     Active Substance: ADENOSINE TRIPHOSPHATE
  11. METHYLCOBALAMIN [Concomitant]
     Active Substance: METHYLCOBALAMIN
  12. METHYLCOBALAMIN [Concomitant]
     Active Substance: METHYLCOBALAMIN
     Route: 048
  13. METHYLCOBALAMIN [Concomitant]
     Active Substance: METHYLCOBALAMIN
  14. METHYLCOBALAMIN [Concomitant]
     Active Substance: METHYLCOBALAMIN
     Route: 048
  15. AMLODIPINE\TELMISARTAN [Concomitant]
     Active Substance: AMLODIPINE\TELMISARTAN
     Route: 048
  16. AMLODIPINE\TELMISARTAN [Concomitant]
     Active Substance: AMLODIPINE\TELMISARTAN
  17. FENOFIBRATE [Concomitant]
     Active Substance: FENOFIBRATE
  18. FENOFIBRATE [Concomitant]
     Active Substance: FENOFIBRATE
     Route: 048
  19. FENOFIBRATE [Concomitant]
     Active Substance: FENOFIBRATE
  20. FENOFIBRATE [Concomitant]
     Active Substance: FENOFIBRATE
     Route: 048
  21. RYBELSUS [Concomitant]
     Active Substance: SEMAGLUTIDE
     Indication: Type 2 diabetes mellitus
     Route: 048
  22. RYBELSUS [Concomitant]
     Active Substance: SEMAGLUTIDE
  23. METFORMIN HYDROCHLORIDE [Concomitant]
     Active Substance: METFORMIN HYDROCHLORIDE
     Indication: Type 2 diabetes mellitus
  24. METFORMIN HYDROCHLORIDE [Concomitant]
     Active Substance: METFORMIN HYDROCHLORIDE
     Route: 048
  25. METFORMIN HYDROCHLORIDE [Concomitant]
     Active Substance: METFORMIN HYDROCHLORIDE
  26. METFORMIN HYDROCHLORIDE [Concomitant]
     Active Substance: METFORMIN HYDROCHLORIDE
     Route: 048
  27. ROSUVASTATIN [Concomitant]
     Active Substance: ROSUVASTATIN
     Route: 048
  28. ROSUVASTATIN [Concomitant]
     Active Substance: ROSUVASTATIN

REACTIONS (3)
  - Thrombotic cerebral infarction [Recovering/Resolving]
  - Blood urea increased [Recovered/Resolved]
  - Dehydration [Recovered/Resolved]
